FAERS Safety Report 10465345 (Version 2)
Quarter: 2014Q4

REPORT INFORMATION
  Report Type: Report from Study
  Country: US (occurrence: US)
  Receive Date: 20140919
  Receipt Date: 20141021
  Transmission Date: 20150528
  Serious: Yes (Death, Other)
  Sender: FDA-Public Use
  Company Number: US-GILEAD-2014-0115542

PATIENT
  Age: 13 Year
  Sex: Female
  Weight: 37.64 kg

DRUGS (23)
  1. AZTREONAM LYSINE [Suspect]
     Active Substance: AZTREONAM LYSINE
     Indication: PSEUDOMONAS INFECTION
  2. BUSPAR [Concomitant]
     Active Substance: BUSPIRONE HYDROCHLORIDE
     Dosage: 10 MG, BID
     Route: 048
  3. FERROUS SULFATE [Concomitant]
     Active Substance: FERROUS SULFATE\FERROUS SULFATE, DRIED
     Dosage: 160 MG, QD WITH BREAKFAST
     Route: 048
  4. ZITHROMAX [Concomitant]
     Active Substance: AZITHROMYCIN DIHYDRATE
     Dosage: 250 MG, QOD (MWF)
     Route: 048
  5. PULMOZYME [Concomitant]
     Active Substance: DORNASE ALFA
     Dosage: 2.5 ML, BID
     Route: 055
  6. TOBI [Concomitant]
     Active Substance: TOBRAMYCIN
     Dosage: 5 ML, BID
     Route: 055
  7. ZENPEP [Concomitant]
     Active Substance: PANCRELIPASE\PANCRELIPASE AMYLASE\PANCRELIPASE LIPASE\PANCRELIPASE PROTEASE
     Dosage: 4 CAPSULES (DF), TID WITH MEALS
     Route: 048
  8. ZYVOX [Concomitant]
     Active Substance: LINEZOLID
     Dosage: 600 MG, BID
     Route: 048
  9. ZOFRAN                             /00955301/ [Concomitant]
     Active Substance: ONDANSETRON HYDROCHLORIDE
     Indication: NAUSEA
     Dosage: 8 MG, PRN EVERY 8-HRS
     Route: 048
  10. ZOFRAN                             /00955301/ [Concomitant]
     Active Substance: ONDANSETRON HYDROCHLORIDE
     Indication: VOMITING
  11. SODIUM CHLORIDE. [Concomitant]
     Active Substance: SODIUM CHLORIDE
     Dosage: 4 ML, QD
     Route: 050
  12. PROVENTIL HFA                      /00139501/ [Concomitant]
     Indication: WHEEZING
     Dosage: 2 PUFFS (DF), PRN Q4HR
     Route: 048
  13. PRILOSEC [Concomitant]
     Active Substance: OMEPRAZOLE MAGNESIUM
     Dosage: 2 TABLETS (DF), QD
     Route: 048
  14. OXYGEN. [Concomitant]
     Active Substance: OXYGEN
     Dosage: 8-9 LITERS, WITH REBREATHER MASK QHS
  15. PEDIASURE                          /07459601/ [Concomitant]
     Indication: NUTRITIONAL SUPPLEMENTATION
     Dosage: 1 CANS (DF), PRN
  16. REGLAN [Concomitant]
     Active Substance: METOCLOPRAMIDE HYDROCHLORIDE
     Dosage: 5 MG, QID
     Route: 048
  17. PEPTAMEN [Concomitant]
     Dosage: 3 CANS (DF), QID BETWEEN MEALS AND HS
     Route: 050
  18. AQUADEKS                           /07679501/ [Concomitant]
     Dosage: 1 CAPSULE (DF), BID
     Route: 048
  19. PERIACTIN [Concomitant]
     Active Substance: CYPROHEPTADINE HYDROCHLORIDE
     Indication: DECREASED APPETITE
     Dosage: 4 MG, PRN TWICE DAILY
     Route: 048
  20. AZTREONAM LYSINE [Suspect]
     Active Substance: AZTREONAM LYSINE
     Indication: CYSTIC FIBROSIS LUNG
     Dosage: 75 MG, TID
     Route: 055
  21. ZENPEP [Concomitant]
     Active Substance: PANCRELIPASE\PANCRELIPASE AMYLASE\PANCRELIPASE LIPASE\PANCRELIPASE PROTEASE
     Dosage: 2 CAPSULES (DF), WITH SNACKS
     Route: 048
  22. VITAMIN D3 [Concomitant]
     Active Substance: CHOLECALCIFEROL
     Dosage: 2 TABLET (DF), QD
     Route: 048
  23. OXYGEN. [Concomitant]
     Active Substance: OXYGEN
     Dosage: 4 LITERS VIA NASAL CANNULA, DURING THE DAY
     Route: 045

REACTIONS (1)
  - Respiratory failure [Fatal]
